FAERS Safety Report 10381269 (Version 1)
Quarter: 2014Q3

REPORT INFORMATION
  Report Type: Spontaneous
  Country: GB (occurrence: None)
  Receive Date: 20140811
  Receipt Date: 20140811
  Transmission Date: 20150326
  Serious: Yes (Hospitalization)
  Sender: FDA-Public Use
  Company Number: AUR-APL-2014-08253

PATIENT
  Age: 52 Year
  Sex: Female

DRUGS (2)
  1. NAPROXEN. [Suspect]
     Active Substance: NAPROXEN
     Indication: ARTHRALGIA
     Route: 048
     Dates: start: 20140704, end: 20140704
  2. OMEPRAZOLE. [Concomitant]
     Active Substance: OMEPRAZOLE

REACTIONS (7)
  - Rash pruritic [None]
  - Pyrexia [None]
  - Drug hypersensitivity [None]
  - Photophobia [None]
  - Headache [None]
  - Meningitis aseptic [None]
  - Rash macular [None]

NARRATIVE: CASE EVENT DATE: 20140704
